FAERS Safety Report 6013315-0 (Version None)
Quarter: 2008Q4

REPORT INFORMATION
  Report Type: 
  Country: None (occurrence: None)
  Receive Date: 20081216
  Receipt Date: 20080826
  Transmission Date: 20090506
  Serious: Yes (Other)
  Sender: FDA-Public Use
  Company Number: US-WYE-H05800208

PATIENT
  Sex: Male

DRUGS (2)
  1. EFFEXOR XR [Suspect]
     Dosage: 150 MG 2X PER 1 DAY, ORAL
     Route: 048
  2. PRISTIQ [Suspect]
     Dosage: 50 MG 2X PER 1 DAY, ORAL
     Route: 048

REACTIONS (4)
  - DIZZINESS [None]
  - DRUG WITHDRAWAL SYNDROME [None]
  - NAUSEA [None]
  - UNEVALUABLE EVENT [None]
